FAERS Safety Report 18659477 (Version 1)
Quarter: 2020Q4

REPORT INFORMATION
  Report Type: Spontaneous
  Country: US (occurrence: US)
  Receive Date: 20201223
  Receipt Date: 20201223
  Transmission Date: 20210114
  Serious: Yes (Hospitalization)
  Sender: FDA-Public Use
  Company Number: None

PATIENT
  Age: 54 Year
  Sex: Male

DRUGS (2)
  1. BUPRENORPHINE (BUPRENORPHINE HCL 2MG TAB, SUBLINGUAL) [Suspect]
     Active Substance: BUPRENORPHINE HYDROCHLORIDE
     Indication: DRUG USE DISORDER
     Dates: start: 20200914, end: 20201028
  2. QUETIAPINE (QUETIAPINE FUMARATE 100MG TAB) [Suspect]
     Active Substance: QUETIAPINE FUMARATE
     Indication: DEPRESSION
     Dates: start: 20200914, end: 20201028

REACTIONS (3)
  - Myoclonus [None]
  - Tremor [None]
  - Confusional state [None]

NARRATIVE: CASE EVENT DATE: 20201028
